FAERS Safety Report 9338419 (Version 2)
Quarter: 2013Q3

REPORT INFORMATION
  Report Type: Spontaneous
  Country: US (occurrence: US)
  Receive Date: 20130610
  Receipt Date: 20130909
  Transmission Date: 20140515
  Serious: No
  Sender: FDA-Public Use
  Company Number: US-PFIZER INC-2013170343

PATIENT
  Age: 69 Year
  Sex: Female

DRUGS (2)
  1. INLYTA [Suspect]
     Dosage: 5 MG TWICE A DAY
     Dates: start: 20130524
  2. INLYTA [Suspect]
     Dosage: 1 MG, UNK

REACTIONS (1)
  - Nasopharyngitis [Unknown]
